FAERS Safety Report 20438707 (Version 1)
Quarter: 2022Q1

REPORT INFORMATION
  Report Type: Spontaneous
  Country: US (occurrence: None)
  Receive Date: 20220204
  Receipt Date: 20220204
  Transmission Date: 20220424
  Serious: No
  Sender: FDA-Public Use
  Company Number: None

PATIENT
  Sex: Female

DRUGS (1)
  1. IMATINIB [Suspect]
     Active Substance: IMATINIB
     Indication: Connective tissue neoplasm
     Dosage: FREQUENCY : TWICE A DAY;?
     Route: 048
     Dates: start: 20201116

REACTIONS (1)
  - Hepatic neoplasm [None]
